FAERS Safety Report 6729376-7 (Version None)
Quarter: 2010Q2

REPORT INFORMATION
  Report Type: 
  Country: None (occurrence: None)
  Receive Date: 20100517
  Receipt Date: 20100513
  Transmission Date: 20101027
  Serious: No
  Sender: FDA-Public Use
  Company Number: US-ABBOTT-10P-163-0644230-00

PATIENT
  Sex: Male
  Weight: 99.88 kg

DRUGS (4)
  1. SIMCOR [Suspect]
     Indication: LOW DENSITY LIPOPROTEIN INCREASED
     Dosage: 2 - 500/20 MG TAB DAILY
     Route: 048
     Dates: start: 20100511
  2. ASPIRIN [Concomitant]
     Indication: FLUSHING
     Route: 048
  3. ASPIRIN [Concomitant]
     Indication: PROPHYLAXIS
  4. DIOVAN [Concomitant]
     Indication: HYPERTENSION
     Route: 048

REACTIONS (2)
  - HOT FLUSH [None]
  - PARAESTHESIA [None]
